FAERS Safety Report 8369714-5 (Version None)
Quarter: 2012Q2

REPORT INFORMATION
  Report Type: 
  Country: None (occurrence: None)
  Receive Date: 20120518
  Receipt Date: 20120515
  Transmission Date: 20120825
  Serious: Yes (Death, Hospitalization, Other)
  Sender: FDA-Public Use
  Company Number: PHEH2012US009781

PATIENT
  Sex: Female

DRUGS (7)
  1. GLEEVEC [Suspect]
     Indication: ACUTE LYMPHOCYTIC LEUKAEMIA
     Dosage: 600 MG, DAILY
     Route: 048
     Dates: start: 20120228
  2. METHOTREXATE [Concomitant]
     Dates: start: 20120329
  3. CHEMOTHERAPEUTICS [Concomitant]
     Dates: start: 20120220
  4. CHEMOTHERAPEUTICS [Concomitant]
     Dates: start: 20120401
  5. GLEEVEC [Suspect]
     Dosage: UNK UKN, UNK
     Route: 048
     Dates: start: 20120411
  6. CYTARABINE [Concomitant]
     Dates: start: 20120412
  7. CHEMOTHERAPEUTICS [Concomitant]
     Dates: start: 20120430

REACTIONS (5)
  - DEATH [None]
  - LIVER FUNCTION TEST ABNORMAL [None]
  - CHOLECYSTITIS ACUTE [None]
  - BACTERAEMIA [None]
  - THROMBOCYTOPENIA [None]
